FAERS Safety Report 21721179 (Version 1)
Quarter: 2022Q4

REPORT INFORMATION
  Report Type: Spontaneous
  Country: US (occurrence: US)
  Receive Date: 20221213
  Receipt Date: 20221213
  Transmission Date: 20230113
  Serious: No
  Sender: FDA-Public Use
  Company Number: US-SA-SAC20221212000694

PATIENT
  Age: 13 Year
  Sex: Female

DRUGS (2)
  1. DUPIXENT [Suspect]
     Active Substance: DUPILUMAB
     Indication: Dermatitis atopic
     Dosage: 300MG , QOW
     Route: 058
  2. DAPSONE [Suspect]
     Active Substance: DAPSONE
     Dosage: UNK

REACTIONS (3)
  - Injection site urticaria [Unknown]
  - Injection site swelling [Unknown]
  - Rash [Unknown]

NARRATIVE: CASE EVENT DATE: 20221101
